FAERS Safety Report 11574557 (Version 3)
Quarter: 2015Q4

REPORT INFORMATION
  Report Type: Spontaneous
  Country: US (occurrence: US)
  Receive Date: 20150930
  Receipt Date: 20151030
  Transmission Date: 20160304
  Serious: Yes (Other)
  Sender: FDA-Public Use
  Company Number: US-ROCHE-ITM201505IM015159

PATIENT
  Sex: Male
  Weight: 94.89 kg

DRUGS (1)
  1. ESBRIET [Suspect]
     Active Substance: PIRFENIDONE
     Indication: IDIOPATHIC PULMONARY FIBROSIS
     Dosage: 3 CAPSULES THRICE DAILY
     Route: 048
     Dates: start: 20150219

REACTIONS (8)
  - Weight decreased [Unknown]
  - Abdominal discomfort [Unknown]
  - Eating disorder [Recovered/Resolved]
  - Pneumonia [Unknown]
  - Hypophagia [Recovered/Resolved]
  - Dyspepsia [Unknown]
  - Nausea [Unknown]
  - Musculoskeletal discomfort [Unknown]
